FAERS Safety Report 8837877 (Version 1)
Quarter: 2012Q4

REPORT INFORMATION
  Report Type: 
  Country: US (occurrence: US)
  Receive Date: 20121012
  Receipt Date: 20121012
  Transmission Date: 20130627
  Serious: Yes (Hospitalization)
  Sender: FDA-Public Use
  Company Number: US-BAYER-2012-103396

PATIENT
  Age: 18 Year
  Sex: Female

DRUGS (3)
  1. OCELLA [Suspect]
  2. SAFYRAL [Suspect]
  3. ALBUTEROL [Concomitant]
     Indication: ASTHMA
     Route: 045

REACTIONS (1)
  - Pulmonary embolism [Recovered/Resolved]
